FAERS Safety Report 12475770 (Version 1)
Quarter: 2016Q2

REPORT INFORMATION
  Report Type: Spontaneous
  Country: CH (occurrence: CH)
  Receive Date: 20160617
  Receipt Date: 20160617
  Transmission Date: 20160815
  Serious: Yes (Death, Hospitalization)
  Sender: FDA-Public Use
  Company Number: CH-JNJFOC-20160613985

PATIENT
  Age: 78 Year
  Sex: Male

DRUGS (5)
  1. MICARDIS [Concomitant]
     Active Substance: TELMISARTAN
     Route: 065
  2. XARELTO [Suspect]
     Active Substance: RIVAROXABAN
     Indication: ATRIAL FIBRILLATION
     Route: 048
     Dates: end: 20160426
  3. XARELTO [Suspect]
     Active Substance: RIVAROXABAN
     Indication: CEREBROVASCULAR ACCIDENT PROPHYLAXIS
     Route: 048
     Dates: end: 20160426
  4. TORASEMID [Concomitant]
     Active Substance: TORSEMIDE
     Route: 065
  5. CARDURA CR [Concomitant]
     Active Substance: DOXAZOSIN MESYLATE
     Route: 065

REACTIONS (4)
  - Hemiparesis [Fatal]
  - Facial paresis [Fatal]
  - Cerebral haemorrhage [Fatal]
  - Basal ganglia haemorrhage [Fatal]

NARRATIVE: CASE EVENT DATE: 20160426
